FAERS Safety Report 6555924-6 (Version None)
Quarter: 2010Q1

REPORT INFORMATION
  Report Type: 
  Country: None (occurrence: None)
  Receive Date: 20100128
  Receipt Date: 20100119
  Transmission Date: 20100710
  Serious: Yes (Hospitalization)
  Sender: FDA-Public Use
  Company Number: JP-JNJFOC-20091107921

PATIENT
  Sex: Female
  Weight: 50 kg

DRUGS (18)
  1. DOXORUBICIN HCL [Suspect]
     Indication: OVARIAN CANCER RECURRENT
     Dosage: CYCLE 1
     Route: 042
     Dates: start: 20090722, end: 20090817
  2. DOXORUBICIN HCL [Suspect]
     Dosage: CYCLE 2
     Route: 042
     Dates: start: 20090722, end: 20090817
  3. OXYCONTIN [Suspect]
     Indication: DRUG USE FOR UNKNOWN INDICATION
     Route: 048
  4. LOXONIN [Concomitant]
     Route: 048
  5. GABAPEN [Concomitant]
     Route: 048
  6. MAGMITT [Concomitant]
     Route: 048
  7. MUCOSTA [Concomitant]
     Route: 048
  8. LAXOBERON [Concomitant]
     Route: 048
  9. HIBON [Concomitant]
     Indication: PROPHYLAXIS
     Route: 048
  10. VITAMIN B6 [Concomitant]
     Indication: PROPHYLAXIS
     Route: 048
  11. SEROTONE [Concomitant]
     Indication: PROPHYLAXIS
     Route: 042
  12. RINDERON [Concomitant]
     Indication: PROPHYLAXIS
     Route: 042
  13. FAMOSTAGINE [Concomitant]
     Indication: PROPHYLAXIS
     Route: 042
  14. AZULENE [Concomitant]
     Indication: PROPHYLAXIS
     Route: 049
  15. OXINORM [Concomitant]
     Route: 048
  16. LENDORMIN [Concomitant]
     Route: 048
  17. FENTANYL CITRATE [Concomitant]
     Route: 062
  18. FENTANYL CITRATE [Concomitant]
     Route: 062

REACTIONS (2)
  - INTESTINAL OBSTRUCTION [None]
  - LIVER DISORDER [None]
